FAERS Safety Report 12245995 (Version 1)
Quarter: 2016Q2

REPORT INFORMATION
  Report Type: Spontaneous
  Country: US (occurrence: None)
  Receive Date: 20160406
  Receipt Date: 20160406
  Transmission Date: 20160815
  Serious: No
  Sender: FDA-Public Use
  Company Number: None

PATIENT
  Age: 77 Year
  Sex: Male
  Weight: 77.11 kg

DRUGS (6)
  1. SALINE [Concomitant]
     Active Substance: SODIUM CHLORIDE
  2. DECADRON [Concomitant]
     Active Substance: DEXAMETHASONE
  3. IRON DEXTRAN, 250MG ACTIVIS [Suspect]
     Active Substance: IRON DEXTRAN
     Indication: IRON DEFICIENCY
     Dosage: INTRAVENOUS (NOT OTHERWISE SPECIFIED)
     Route: 042
     Dates: start: 20160331, end: 20160331
  4. BENADRYL [Concomitant]
     Active Substance: DIPHENHYDRAMINE HYDROCHLORIDE
  5. IRON DEXTRAN, 250MG ACTIVIS [Suspect]
     Active Substance: IRON DEXTRAN
     Indication: ANAEMIA
     Dosage: INTRAVENOUS (NOT OTHERWISE SPECIFIED)
     Route: 042
     Dates: start: 20160331, end: 20160331
  6. IRON SUCROSE [Concomitant]
     Active Substance: IRON SUCROSE

REACTIONS (3)
  - Dyspnoea [None]
  - Back pain [None]
  - Chest pain [None]

NARRATIVE: CASE EVENT DATE: 20160331
